FAERS Safety Report 19116266 (Version 1)
Quarter: 2021Q2

REPORT INFORMATION
  Report Type: Spontaneous
  Country: NL (occurrence: NL)
  Receive Date: 20210409
  Receipt Date: 20210409
  Transmission Date: 20210717
  Serious: Yes (Other)
  Sender: FDA-Public Use
  Company Number: NL-TEVA-2021-NL-1899057

PATIENT
  Sex: Male
  Weight: 96 kg

DRUGS (2)
  1. GLATIRAMEER INJVLST 40MG/ML / COPAXONE INJVLST 40MG/ML WWSP 1ML [Concomitant]
     Dosage: INJECTION LIQUID, 40 MG / ML,THERAPY START DATE  ASKU
     Dates: end: 20190801
  2. LORATADINE TABLET 10MG / BRAND NAME NOT SPECIFIED [Suspect]
     Active Substance: LORATADINE
     Indication: URTICARIA
     Dosage: 1 DOSAGE FORMS DAILY;
     Dates: start: 2016, end: 20190801

REACTIONS (1)
  - Thrombocytopenia [Recovered/Resolved]
